FAERS Safety Report 11964826 (Version 1)
Quarter: 2016Q1

REPORT INFORMATION
  Report Type: Spontaneous
  Country: US (occurrence: US)
  Receive Date: 20160127
  Receipt Date: 20160127
  Transmission Date: 20160526
  Serious: No
  Sender: FDA-Public Use
  Company Number: US-009507513-1601USA008393

PATIENT
  Sex: Female

DRUGS (1)
  1. JANUMET XR [Suspect]
     Active Substance: METFORMIN HYDROCHLORIDE\SITAGLIPTIN PHOSPHATE
     Indication: DIABETES MELLITUS
     Dosage: DOSE WAS REPORTED AS 500/1000 (UNIT NOT PROVIDED), TWICE DAILY
     Route: 048

REACTIONS (2)
  - Glycosylated haemoglobin increased [Unknown]
  - Drug dose omission [Unknown]
